FAERS Safety Report 5006894-3 (Version None)
Quarter: 2006Q2

REPORT INFORMATION
  Report Type: 
  Country: None (occurrence: None)
  Receive Date: 20060517
  Receipt Date: 20060504
  Transmission Date: 20061013
  Serious: Yes (Hospitalization)
  Sender: FDA-Public Use
  Company Number: 2006056147

PATIENT
  Age: 51 Year
  Sex: Male
  Weight: 61.1 kg

DRUGS (13)
  1. SUTENT           (SUNITINIB MALATE)SU-011,248 [Suspect]
     Indication: GASTROINTESTINAL STROMAL TUMOUR
     Dosage: 50 MG (50 MG, DAILY), ORAL
     Route: 048
     Dates: start: 20060420
  2. MORPHINE [Concomitant]
  3. METOCLOPRAMIDE [Concomitant]
  4. VENLAFAXINE HCL [Concomitant]
  5. DIAZEPAM [Concomitant]
  6. TEMAZEPAM [Concomitant]
  7. AMOXICILLIN [Concomitant]
  8. MOVICOL (MACROGOL, POTASSIUM CHLORIDE, SODIUM BICARBONATE, SODIUM CHLO [Concomitant]
  9. DEXAMETHASONE [Concomitant]
  10. ORAMORPH SR [Concomitant]
  11. DICLOFENAC SODIUM [Concomitant]
  12. MICONAZOLE NITRATE [Concomitant]
  13. LANSOPRAZOLE [Concomitant]

REACTIONS (9)
  - ASPARTATE AMINOTRANSFERASE DECREASED [None]
  - BLOOD ALBUMIN DECREASED [None]
  - BLOOD ALKALINE PHOSPHATASE INCREASED [None]
  - C-REACTIVE PROTEIN INCREASED [None]
  - CHEST PAIN [None]
  - FIBRIN D DIMER INCREASED [None]
  - PROTEIN TOTAL DECREASED [None]
  - RED BLOOD CELL COUNT DECREASED [None]
  - WHITE BLOOD CELL COUNT INCREASED [None]
